FAERS Safety Report 4653104-2 (Version None)
Quarter: 2005Q2

REPORT INFORMATION
  Report Type: 
  Country: None (occurrence: None)
  Receive Date: 20050505
  Receipt Date: 20050419
  Transmission Date: 20051028
  Serious: Yes (Other)
  Sender: FDA-Public Use
  Company Number: 200513263US

PATIENT
  Sex: Female

DRUGS (8)
  1. TAXOTERE [Suspect]
     Indication: BREAST CANCER
     Dates: start: 20021001, end: 20021203
  2. HYOSCYAMINE [Concomitant]
  3. REGLAN [Concomitant]
     Dosage: DOSE: UNK
     Route: 048
  4. PROTONIX [Concomitant]
     Dosage: DOSE: UNK
     Route: 048
  5. MIRALAX [Concomitant]
     Dosage: DOSE: UNK
     Route: 048
  6. IMODIUM [Concomitant]
     Dosage: DOSE: UNK
     Route: 048
  7. NEURONTIN [Concomitant]
     Indication: NEUROPATHY PERIPHERAL
     Dosage: DOSE: UNK
     Route: 048
  8. FEMARA [Concomitant]
     Dosage: DOSE: UNK
     Route: 048

REACTIONS (3)
  - ABDOMINAL PAIN [None]
  - CONSTIPATION [None]
  - NEUROGENIC BOWEL [None]
